FAERS Safety Report 20901636 (Version 3)
Quarter: 2022Q3

REPORT INFORMATION
  Report Type: Spontaneous
  Country: US (occurrence: US)
  Receive Date: 20220601
  Receipt Date: 20220718
  Transmission Date: 20221027
  Serious: Yes (Other)
  Sender: FDA-Public Use
  Company Number: US-AMGEN-USASP2022091292

PATIENT
  Age: 78 Year
  Sex: Female
  Weight: 72.562 kg

DRUGS (1)
  1. REPATHA [Suspect]
     Active Substance: EVOLOCUMAB
     Indication: Hypercholesterolaemia
     Dosage: 140 MILLIGRAM, Q2WK
     Route: 058
     Dates: start: 201508

REACTIONS (2)
  - Iliac artery disease [Unknown]
  - Product storage error [Unknown]

NARRATIVE: CASE EVENT DATE: 20220525
